FAERS Safety Report 12177537 (Version 4)
Quarter: 2016Q2

REPORT INFORMATION
  Report Type: Spontaneous
  Country: BR (occurrence: BR)
  Receive Date: 20160314
  Receipt Date: 20160607
  Transmission Date: 20160815
  Serious: Yes (Other)
  Sender: FDA-Public Use
  Company Number: BR-ABBVIE-16P-020-1582294-00

PATIENT
  Age: 27 Year
  Sex: Male
  Weight: 110 kg

DRUGS (6)
  1. PHENYTOIN. [Concomitant]
     Active Substance: PHENYTOIN
     Indication: EPILEPSY
     Route: 048
     Dates: start: 201308
  2. PHENYTOIN. [Concomitant]
     Active Substance: PHENYTOIN
     Indication: ANXIOLYTIC THERAPY
  3. DEPAKENE [Suspect]
     Active Substance: VALPROIC ACID
     Dosage: PATIENT REACHED 2.5G TO 3G A DAY
     Route: 065
  4. DEPAKENE [Suspect]
     Active Substance: VALPROIC ACID
     Indication: EPILEPSY
     Route: 048
     Dates: start: 201301
  5. RIVOTRIL [Concomitant]
     Active Substance: CLONAZEPAM
     Indication: ANXIOLYTIC THERAPY
     Route: 048
     Dates: start: 2013
  6. LAMITOR [Concomitant]
     Active Substance: LAMOTRIGINE
     Indication: EPILEPSY
     Route: 048
     Dates: start: 20160304

REACTIONS (10)
  - Drug ineffective [Unknown]
  - Somnolence [Unknown]
  - Blood cholesterol increased [Recovering/Resolving]
  - Anticonvulsant drug level decreased [Unknown]
  - Epilepsy [Recovered/Resolved]
  - Seizure [Recovering/Resolving]
  - Epilepsy [Recovered/Resolved]
  - Epilepsy [Recovered/Resolved]
  - Blood triglycerides increased [Recovering/Resolving]
  - Product quality issue [Unknown]

NARRATIVE: CASE EVENT DATE: 201301
